FAERS Safety Report 25777472 (Version 2)
Quarter: 2025Q3

REPORT INFORMATION
  Report Type: Spontaneous
  Country: US (occurrence: US)
  Receive Date: 20250909
  Receipt Date: 20250910
  Transmission Date: 20251021
  Serious: No
  Sender: ELI LILLY AND COMPANY
  Company Number: US-ELI_LILLY_AND_COMPANY-US202509006262

PATIENT
  Age: 62 Year
  Sex: Female

DRUGS (1)
  1. VERZENIO [Suspect]
     Active Substance: ABEMACICLIB
     Indication: Breast cancer
     Dosage: 50 MG, BID
     Route: 048
     Dates: start: 20250714

REACTIONS (7)
  - Dyspnoea [Not Recovered/Not Resolved]
  - Product dose omission issue [Unknown]
  - Red blood cell count decreased [Unknown]
  - Platelet count decreased [Unknown]
  - White blood cell count decreased [Unknown]
  - Diarrhoea [Recovering/Resolving]
  - Fatigue [Not Recovered/Not Resolved]
